FAERS Safety Report 9227767 (Version 2)
Quarter: 2014Q2

REPORT INFORMATION
  Report Type: Spontaneous
  Country: BR (occurrence: BR)
  Receive Date: 20130412
  Receipt Date: 20140403
  Transmission Date: 20141212
  Serious: Yes (Other)
  Sender: FDA-Public Use
  Company Number: PHHY2013BR033510

PATIENT
  Age: 61 Year
  Sex: Female

DRUGS (3)
  1. CLOFAZIMINE [Suspect]
     Indication: LEPROSY
     Dosage: UNK UKN, UNK
  2. RIFAMPICIN [Suspect]
  3. DAPSONE [Suspect]
     Indication: LEPROSY

REACTIONS (4)
  - Type I hypersensitivity [Unknown]
  - Erythema [Unknown]
  - Skin lesion [Unknown]
  - Face oedema [Unknown]
